FAERS Safety Report 13605855 (Version 2)
Quarter: 2017Q2

REPORT INFORMATION
  Report Type: Spontaneous
  Country: US (occurrence: US)
  Receive Date: 20170602
  Receipt Date: 20170620
  Transmission Date: 20170830
  Serious: Yes (Other)
  Sender: FDA-Public Use
  Company Number: US-ROCHE-1942084

PATIENT
  Age: 49 Year
  Sex: Male
  Weight: 71.28 kg

DRUGS (1)
  1. XOLAIR [Suspect]
     Active Substance: OMALIZUMAB
     Indication: ASTHMA
     Dosage: LAST DOSE RECEIVED ON 24/MAY/2014
     Route: 058
     Dates: start: 2008

REACTIONS (4)
  - Stress [Unknown]
  - Vision blurred [Unknown]
  - Dyspnoea exertional [Unknown]
  - Cardiac valve disease [Unknown]

NARRATIVE: CASE EVENT DATE: 201705
